FAERS Safety Report 15769614 (Version 1)
Quarter: 2018Q4

REPORT INFORMATION
  Report Type: Spontaneous
  Country: FR (occurrence: FR)
  Receive Date: 20181228
  Receipt Date: 20181228
  Transmission Date: 20190205
  Serious: Yes (Death, Other)
  Sender: FDA-Public Use
  Company Number: FR-AUROBINDO-AUR-APL-2018-062939

PATIENT
  Age: 56 Year
  Sex: Male
  Weight: 52 kg

DRUGS (6)
  1. VOLTARENE (DICLOFENAC SODIUM) [Suspect]
     Active Substance: DICLOFENAC SODIUM
     Indication: PAIN
     Dosage: 100 MILLIGRAM, DAILY
     Route: 048
     Dates: start: 20181102, end: 20181112
  2. DONORMYL                           /00334102/ [Suspect]
     Active Substance: DOXYLAMINE SUCCINATE
     Indication: INSOMNIA
     Dosage: 15 MILLIGRAM, DAILY
     Route: 048
     Dates: start: 20181102, end: 20181112
  3. DOLIPRANE [Suspect]
     Active Substance: ACETAMINOPHEN
     Indication: PAIN
     Dosage: UNK
     Route: 048
     Dates: start: 20181102, end: 20181112
  4. XALKORI [Suspect]
     Active Substance: CRIZOTINIB
     Indication: LUNG CANCER METASTATIC
     Dosage: 500 MILLIGRAM, DAILY
     Route: 048
     Dates: start: 20181015, end: 20181114
  5. PANTOPRAZOLE [Suspect]
     Active Substance: PANTOPRAZOLE
     Indication: PROPHYLAXIS AGAINST GASTROINTESTINAL ULCER
     Dosage: UNK
     Route: 048
     Dates: start: 20181102, end: 20181112
  6. MYCOSTATINE [Suspect]
     Active Substance: NYSTATIN
     Indication: CANDIDA INFECTION
     Dosage: 1 DOSAGE FORM, DAILY
     Route: 048
     Dates: start: 20181102, end: 20181112

REACTIONS (2)
  - Hepatocellular injury [Fatal]
  - Bilirubin conjugated increased [Fatal]

NARRATIVE: CASE EVENT DATE: 20181114
